FAERS Safety Report 11965864 (Version 1)
Quarter: 2016Q1

REPORT INFORMATION
  Report Type: Report from Study
  Country: DE (occurrence: DE)
  Receive Date: 20160127
  Receipt Date: 20160127
  Transmission Date: 20160526
  Serious: Yes (Life-Threatening, Hospitalization)
  Sender: FDA-Public Use
  Company Number: DE-TEVA-624424GER

PATIENT
  Age: 50 Year
  Sex: Female
  Weight: 67 kg

DRUGS (4)
  1. MYOCET [Suspect]
     Active Substance: DOXORUBICIN
     Indication: BREAST CANCER FEMALE
     Dosage: LAST DOSE PRIOR TO SAE: 29-DEC-2015, TEMPORARILY STOPPED ON 12-JAN-2016, RESTARTED IN --2016
     Route: 042
     Dates: start: 20151110
  2. TAXOL [Suspect]
     Active Substance: PACLITAXEL
     Indication: BREAST CANCER FEMALE
     Dosage: LAST DOSE PRIOR TO SAE: 29-DEC-2015, TEMPORARILY STOPPED ON 12-JAN-2016, RESTARTED IN --2016
     Route: 042
     Dates: start: 20151110
  3. HERCEPTIN [Suspect]
     Active Substance: TRASTUZUMAB
     Indication: BREAST CANCER FEMALE
     Dosage: LAST DOSE PRIOR TO SAE: 22-DEC-2015, TEMPORARILY STOPPED ON 12-JAN-2016, RESTARTED IN --2016
     Route: 042
     Dates: start: 20151110
  4. PERTUZUMAB [Suspect]
     Active Substance: PERTUZUMAB
     Indication: BREAST CANCER FEMALE
     Dosage: LAST DOSE PRIOR TO SAE: 22-DEC-2015, TEMPORARILY STOPPED ON 12-JAN-2016, RESTARTED IN --2016
     Route: 042
     Dates: start: 20151110

REACTIONS (2)
  - Pyrexia [Recovered/Resolved with Sequelae]
  - Pneumocystis jirovecii infection [Recovered/Resolved with Sequelae]

NARRATIVE: CASE EVENT DATE: 20160106
